FAERS Safety Report 7631072-9 (Version None)
Quarter: 2011Q3

REPORT INFORMATION
  Report Type: 
  Country: None (occurrence: None)
  Receive Date: 20110715
  Receipt Date: 20110704
  Transmission Date: 20111222
  Serious: Yes (Hospitalization)
  Sender: FDA-Public Use
  Company Number: 2011SP031168

PATIENT
  Age: 25 Year
  Sex: Female
  Weight: 53 kg

DRUGS (1)
  1. IMPLANON [Suspect]
     Indication: CONTRACEPTION
     Dosage: SC
     Route: 058
     Dates: start: 20110127

REACTIONS (4)
  - AMENORRHOEA [None]
  - MUSCLE SPASMS [None]
  - MENORRHAGIA [None]
  - POLYMENORRHOEA [None]
